FAERS Safety Report 19744657 (Version 1)
Quarter: 2021Q3

REPORT INFORMATION
  Report Type: Report from Study
  Country: US (occurrence: US)
  Receive Date: 20210825
  Receipt Date: 20210825
  Transmission Date: 20211014
  Serious: Yes (Death, Other)
  Sender: FDA-Public Use
  Company Number: US-BAYER-2021-184718

PATIENT
  Age: 85 Year
  Sex: Male
  Weight: 95.69 kg

DRUGS (4)
  1. ADEMPAS [Suspect]
     Active Substance: RIOCIGUAT
     Indication: PULMONARY ARTERIAL HYPERTENSION
     Dosage: UNK
     Dates: start: 20180419
  2. ADEMPAS [Suspect]
     Active Substance: RIOCIGUAT
     Indication: PULMONARY ARTERIAL HYPERTENSION
     Dosage: 2.5 MG, TID
     Route: 048
  3. XARELTO [Concomitant]
     Active Substance: RIVAROXABAN
     Dosage: UNK
  4. OPSUMIT [Concomitant]
     Active Substance: MACITENTAN
     Dosage: UNK

REACTIONS (4)
  - Hospice care [Not Recovered/Not Resolved]
  - Immobile [None]
  - General physical health deterioration [Not Recovered/Not Resolved]
  - Death [Fatal]

NARRATIVE: CASE EVENT DATE: 20210705
